FAERS Safety Report 16533012 (Version 2)
Quarter: 2019Q3

REPORT INFORMATION
  Report Type: Spontaneous
  Country: GR (occurrence: GR)
  Receive Date: 20190705
  Receipt Date: 20190715
  Transmission Date: 20191004
  Serious: Yes (Hospitalization, Other)
  Sender: FDA-Public Use
  Company Number: GR-OTSUKA-2019_024892

PATIENT
  Age: 1 Year
  Sex: Female

DRUGS (1)
  1. ARIPIPRAZOLE. [Suspect]
     Active Substance: ARIPIPRAZOLE
     Indication: PRODUCT USED FOR UNKNOWN INDICATION
     Dosage: UNK
     Route: 048

REACTIONS (5)
  - Encephalopathy [Recovered/Resolved]
  - Medication error [Unknown]
  - Product use issue [Unknown]
  - Accidental exposure to product [Unknown]
  - Pyrexia [Recovered/Resolved]
